FAERS Safety Report 13042872 (Version 3)
Quarter: 2019Q2

REPORT INFORMATION
  Report Type: Spontaneous
  Country: US (occurrence: US)
  Receive Date: 20161219
  Receipt Date: 20190412
  Transmission Date: 20190711
  Serious: No
  Sender: FDA-Public Use
  Company Number: US-JAZZ-2016-US-022339

PATIENT
  Sex: Female

DRUGS (20)
  1. HYDROCODONE [Concomitant]
     Active Substance: HYDROCODONE
  2. PROMETHAZINE [Concomitant]
     Active Substance: PROMETHAZINE\PROMETHAZINE HYDROCHLORIDE
  3. VALTREX [Concomitant]
     Active Substance: VALACYCLOVIR HYDROCHLORIDE
  4. XYREM [Suspect]
     Active Substance: SODIUM OXYBATE
     Indication: NARCOLEPSY
     Dosage: 2.25G, BID
     Route: 048
     Dates: start: 200708, end: 2007
  5. XYREM [Suspect]
     Active Substance: SODIUM OXYBATE
     Dosage: 4.5 G, BID
     Route: 048
     Dates: start: 200802
  6. IBUPROFEN. [Concomitant]
     Active Substance: IBUPROFEN
  7. DICLOFENAC SODIUM. [Concomitant]
     Active Substance: DICLOFENAC SODIUM
  8. DIPROPHYLLINE [Concomitant]
     Active Substance: DYPHYLLINE
  9. RELIV [Concomitant]
  10. SINGULAIR [Concomitant]
     Active Substance: MONTELUKAST SODIUM
  11. SALBUTAMOL [Concomitant]
     Active Substance: ALBUTEROL
  12. FOLIC ACID. [Concomitant]
     Active Substance: FOLIC ACID
  13. VERAPAMIL [Concomitant]
     Active Substance: VERAPAMIL HYDROCHLORIDE
  14. XYREM [Suspect]
     Active Substance: SODIUM OXYBATE
     Dosage: DOSE ADJUSTMENT
     Route: 048
     Dates: start: 2007, end: 2008
  15. PREDNISONE. [Concomitant]
     Active Substance: PREDNISONE
  16. VITAMIN E [Concomitant]
     Active Substance: .ALPHA.-TOCOPHEROL
  17. ZYRTEC [Concomitant]
     Active Substance: CETIRIZINE HYDROCHLORIDE
  18. FIORICET [Concomitant]
     Active Substance: ACETAMINOPHEN\BUTALBITAL\CAFFEINE
  19. LEXAPRO [Concomitant]
     Active Substance: ESCITALOPRAM OXALATE
  20. ASPIRIN 81 [Concomitant]
     Active Substance: ASPIRIN

REACTIONS (3)
  - Hypersensitivity [Recovering/Resolving]
  - Pre-existing condition improved [Unknown]
  - Nerve injury [Unknown]

NARRATIVE: CASE EVENT DATE: 2016
